FAERS Safety Report 10881727 (Version 1)
Quarter: 2015Q1

REPORT INFORMATION
  Report Type: Spontaneous
  Country: US (occurrence: None)
  Receive Date: 20150226
  Receipt Date: 20150226
  Transmission Date: 20150721
  Serious: Yes (Other)
  Sender: FDA-Public Use
  Company Number: None

PATIENT
  Age: 71 Year
  Sex: Female
  Weight: 64.41 kg

DRUGS (9)
  1. GLUCOSAMINE WITH CONDROITIN [Concomitant]
  2. PENTOXIFYLLINE. [Concomitant]
     Active Substance: PENTOXIFYLLINE
  3. VITAMINS C [Concomitant]
  4. CALCIUM WITH MAGNESIUM AND ZINC [Concomitant]
  5. VITAMIN B12 [Concomitant]
     Active Substance: CYANOCOBALAMIN
  6. DOXYCYCLINE HYCLATE. [Suspect]
     Active Substance: DOXYCYCLINE HYCLATE
     Indication: LOCALISED INFECTION
     Dosage: 100 MG  2 CAPSULES  AM AND PM BY MOUTH
     Route: 048
     Dates: start: 20140808, end: 20140815
  7. SULINDAC. [Concomitant]
     Active Substance: SULINDAC
  8. TAGAMET [Concomitant]
     Active Substance: CIMETIDINE
  9. VITAMIN D3 [Concomitant]
     Active Substance: CHOLECALCIFEROL

REACTIONS (5)
  - Pain in extremity [None]
  - Localised infection [None]
  - Peripheral swelling [None]
  - Trigger finger [None]
  - Musculoskeletal stiffness [None]

NARRATIVE: CASE EVENT DATE: 20140814
